FAERS Safety Report 5049526-0 (Version None)
Quarter: 2006Q3

REPORT INFORMATION
  Report Type: 
  Country: None (occurrence: None)
  Receive Date: 20060712
  Receipt Date: 20060628
  Transmission Date: 20061208
  Serious: Yes (Other)
  Sender: FDA-Public Use
  Company Number: US-NOVOPROD-254541

PATIENT

DRUGS (2)
  1. NOVOSEVEN [Suspect]
     Indication: CEREBRAL HAEMORRHAGE
     Dosage: 1.2 MG, UNK
  2. WARFARIN SODIUM [Concomitant]
     Indication: ILL-DEFINED DISORDER

REACTIONS (3)
  - CATHETER RELATED COMPLICATION [None]
  - DEVICE OCCLUSION [None]
  - VENOUS OCCLUSION [None]
